FAERS Safety Report 13105628 (Version 2)
Quarter: 2017Q1

REPORT INFORMATION
  Report Type: Spontaneous
  Country: US (occurrence: US)
  Receive Date: 20170111
  Receipt Date: 20170206
  Transmission Date: 20170428
  Serious: Yes (Hospitalization)
  Sender: FDA-Public Use
  Company Number: US-INDIVIOR LIMITED-INDV-097612-2016

PATIENT
  Age: 43 Year
  Sex: Male

DRUGS (4)
  1. BUPRENORPHINE. [Suspect]
     Active Substance: BUPRENORPHINE
     Indication: DRUG DEPENDENCE
     Dosage: 8 MG, 3 TIMES DAILY
     Route: 065
  2. BUPRENORPHINE. [Suspect]
     Active Substance: BUPRENORPHINE
     Dosage: UNK
     Route: 058
  3. OPIOIDS [Suspect]
     Active Substance: UNSPECIFIED INGREDIENT
     Indication: PRODUCT USED FOR UNKNOWN INDICATION
     Dosage: UNK
     Route: 065
  4. BUPRENORPHINE/NALOXONE [Suspect]
     Active Substance: BUPRENORPHINE\NALOXONE
     Indication: DRUG DEPENDENCE
     Dosage: UNK
     Route: 065

REACTIONS (11)
  - Drug abuse [Unknown]
  - Injection site infection [Unknown]
  - Product use issue [Unknown]
  - Injection site reaction [Unknown]
  - Skin lesion [Unknown]
  - Vomiting [Unknown]
  - Intentional product use issue [Unknown]
  - Soft tissue necrosis [Unknown]
  - Drug screen positive [Unknown]
  - Skin mass [Unknown]
  - Nausea [Unknown]
